FAERS Safety Report 8070901-4 (Version None)
Quarter: 2012Q1

REPORT INFORMATION
  Report Type: 
  Country: None (occurrence: None)
  Receive Date: 20120125
  Receipt Date: 20120119
  Transmission Date: 20120608
  Serious: Yes (Hospitalization)
  Sender: FDA-Public Use
  Company Number: GXKR2012DE000656

PATIENT
  Age: 15 Year
  Sex: Male

DRUGS (1)
  1. CLARITHROMYCIN [Suspect]
     Indication: PNEUMONIA
     Dosage: 250 MG, BID
     Route: 048
     Dates: start: 20110812, end: 20110817

REACTIONS (3)
  - MYOPERICARDITIS [None]
  - CHEST PAIN [None]
  - CARDIAC ENZYMES INCREASED [None]
